FAERS Safety Report 8109122 (Version 2)
Quarter: 2013Q1

REPORT INFORMATION
  Report Type: Spontaneous
  Country: FR (occurrence: FR)
  Receive Date: 20110826
  Receipt Date: 20130318
  Transmission Date: 20140127
  Serious: Yes (Other)
  Sender: FDA-Public Use
  Company Number: FR-BAXTER-2011BH027099

PATIENT
  Age: 71 Year
  Sex: Female

DRUGS (10)
  1. GAMMAGARD [Suspect]
     Indication: INCLUSION BODY MYOSITIS
     Route: 042
     Dates: start: 20110711, end: 20110711
  2. GAMMAGARD [Suspect]
     Indication: OFF LABEL USE
  3. ATARAX [Suspect]
     Indication: PREMEDICATION
     Route: 048
     Dates: start: 20110708, end: 20110708
  4. ATARAX [Suspect]
     Route: 048
     Dates: start: 20110711, end: 20110711
  5. AERIUS [Suspect]
     Indication: PREMEDICATION
     Route: 048
     Dates: start: 20110708, end: 20110708
  6. AERIUS [Suspect]
     Route: 048
     Dates: start: 20110711, end: 20110711
  7. KLIPAL CODEINE [Concomitant]
     Indication: PRODUCT USED FOR UNKNOWN INDICATION
     Route: 065
  8. LODINE [Concomitant]
     Indication: PRODUCT USED FOR UNKNOWN INDICATION
     Route: 065
  9. OMEPRAZOLE [Concomitant]
     Indication: PRODUCT USED FOR UNKNOWN INDICATION
     Route: 065
  10. LEVOTHYROX [Concomitant]
     Indication: PRODUCT USED FOR UNKNOWN INDICATION
     Route: 065

REACTIONS (3)
  - Eczema [Recovering/Resolving]
  - Rash vesicular [Unknown]
  - Dyshidrotic eczema [Unknown]
